FAERS Safety Report 4882048-6 (Version None)
Quarter: 2006Q1

REPORT INFORMATION
  Report Type: 
  Country: None (occurrence: None)
  Receive Date: 20060112
  Receipt Date: 20051230
  Transmission Date: 20060701
  Serious: Yes (Other)
  Sender: FDA-Public Use
  Company Number: 220717

PATIENT

DRUGS (1)
  1. TRASTUZUMAB (TRASTUZUMAB) PWDR + SOLVENT, INFUSION SOLN, 440MG [Suspect]

REACTIONS (1)
  - POLYMYOSITIS [None]
